FAERS Safety Report 13549542 (Version 1)
Quarter: 2017Q2

REPORT INFORMATION
  Report Type: Spontaneous
  Country: US (occurrence: US)
  Receive Date: 20170516
  Receipt Date: 20170516
  Transmission Date: 20170830
  Serious: No
  Sender: FDA-Public Use
  Company Number: US-ASTRAZENECA-2017SE46776

PATIENT
  Age: 1050 Month

DRUGS (1)
  1. BRILINTA [Suspect]
     Active Substance: TICAGRELOR
     Indication: STENT PLACEMENT
     Route: 048
     Dates: start: 201703

REACTIONS (3)
  - Heart rate abnormal [Unknown]
  - Dizziness [Not Recovered/Not Resolved]
  - Cardiac fibrillation [Unknown]

NARRATIVE: CASE EVENT DATE: 201703
